FAERS Safety Report 18490076 (Version 2)
Quarter: 2021Q1

REPORT INFORMATION
  Report Type: Spontaneous
  Country: US (occurrence: US)
  Receive Date: 20201111
  Receipt Date: 20210303
  Transmission Date: 20210419
  Serious: Yes (Other)
  Sender: FDA-Public Use
  Company Number: US-DRREDDYS-USA/USA/20/0128818

PATIENT
  Age: 14 Year
  Sex: Female

DRUGS (3)
  1. DEXAMETHASONE SODIUM PHOSPHATE INJECTION, 4 MG/ML [Suspect]
     Active Substance: DEXAMETHASONE SODIUM PHOSPHATE
     Indication: COVID-19 PNEUMONIA
  2. ANAKINRA [Concomitant]
     Active Substance: ANAKINRA
     Indication: COVID-19 PNEUMONIA
  3. REMDESIVIR. [Concomitant]
     Active Substance: REMDESIVIR
     Indication: COVID-19 PNEUMONIA

REACTIONS (1)
  - Cytomegalovirus infection reactivation [Recovering/Resolving]
